FAERS Safety Report 5480464-5 (Version None)
Quarter: 2007Q4

REPORT INFORMATION
  Report Type: 
  Country: None (occurrence: None)
  Receive Date: 20071009
  Receipt Date: 20071005
  Transmission Date: 20080405
  Serious: Yes (Hospitalization)
  Sender: FDA-Public Use
  Company Number: B0490030A

PATIENT
  Age: 32 Year
  Sex: Female

DRUGS (6)
  1. MODACIN [Suspect]
     Indication: OTITIS EXTERNA
     Dosage: 2G PER DAY
     Route: 042
     Dates: start: 20071003, end: 20071003
  2. MEIACT [Concomitant]
     Route: 048
  3. CALONAL [Concomitant]
     Route: 065
  4. EMPYNASE [Concomitant]
     Route: 048
  5. MUCOSTA [Concomitant]
     Route: 048
  6. TARIVID [Concomitant]
     Route: 061

REACTIONS (1)
  - SHOCK [None]
